FAERS Safety Report 11255454 (Version 3)
Quarter: 2015Q4

REPORT INFORMATION
  Report Type: Spontaneous
  Country: US (occurrence: US)
  Receive Date: 20150709
  Receipt Date: 20151015
  Transmission Date: 20160304
  Serious: No
  Sender: FDA-Public Use
  Company Number: US-SA-2015SA083658

PATIENT
  Sex: Male

DRUGS (1)
  1. AFREZZA [Suspect]
     Active Substance: INSULIN HUMAN
     Indication: DIABETES MELLITUS
     Route: 065

REACTIONS (1)
  - Blood glucose increased [Not Recovered/Not Resolved]
